FAERS Safety Report 9782233 (Version 1)
Quarter: 2013Q4

REPORT INFORMATION
  Report Type: Spontaneous
  Country: US (occurrence: US)
  Receive Date: 20131226
  Receipt Date: 20131226
  Transmission Date: 20140711
  Serious: Yes (Other)
  Sender: FDA-Public Use
  Company Number: US-009507513-1312USA009916

PATIENT
  Sex: Female

DRUGS (3)
  1. ZOCOR [Suspect]
     Indication: PRODUCT USED FOR UNKNOWN INDICATION
     Dosage: UNK
  2. HUMULIN NPH [Suspect]
     Indication: TYPE 1 DIABETES MELLITUS
     Dosage: UNK
  3. INSULIN HUMAN [Suspect]
     Indication: TYPE 1 DIABETES MELLITUS
     Dosage: UNK

REACTIONS (1)
  - Cerebrovascular accident [Unknown]
